FAERS Safety Report 24631971 (Version 2)
Quarter: 2025Q3

REPORT INFORMATION
  Report Type: Spontaneous
  Country: GB (occurrence: GB)
  Receive Date: 20241118
  Receipt Date: 20250809
  Transmission Date: 20251020
  Serious: Yes (Other)
  Sender: ALEXION PHARMACEUTICALS
  Company Number: GB-MHRA-EMIS-3110-a0ec1588-0658-4af1-b81a-a46b23ec25b4

PATIENT
  Age: 79 Year
  Sex: Female
  Weight: 59 kg

DRUGS (3)
  1. DAPAGLIFLOZIN [Suspect]
     Active Substance: DAPAGLIFLOZIN
     Indication: Cardiac failure
     Dosage: ONE TO BE TAKEN DAILY
     Route: 065
     Dates: start: 20241004
  2. SPIKEVAX [Concomitant]
     Active Substance: CX-046684
  3. Adjuvanted quadrivalent influenza vaccine [Concomitant]
     Route: 065

REACTIONS (1)
  - Lip swelling [Recovered/Resolved]
